FAERS Safety Report 7680415-9 (Version None)
Quarter: 2011Q3

REPORT INFORMATION
  Report Type: 
  Country: None (occurrence: None)
  Receive Date: 20110812
  Receipt Date: 20110808
  Transmission Date: 20111222
  Serious: Yes (Hospitalization)
  Sender: FDA-Public Use
  Company Number: US-SANOFI-AVENTIS-2011SA051143

PATIENT
  Age: 70 Year
  Sex: Female

DRUGS (24)
  1. AMITRIPTYLINE HCL [Concomitant]
  2. PREVACID [Concomitant]
  3. LIPITOR [Concomitant]
  4. ENOXAPARIN SODIUM [Suspect]
     Indication: THROMBOSIS PROPHYLAXIS
     Route: 058
     Dates: start: 20080623, end: 20080629
  5. LANTUS [Concomitant]
  6. HYDROCODONE [Concomitant]
  7. ZOLOFT [Concomitant]
  8. METOPROLOL TARTRATE [Concomitant]
  9. SYNTHROID [Concomitant]
  10. PLACEBO [Suspect]
     Indication: THROMBOSIS PROPHYLAXIS
     Route: 048
     Dates: start: 20080623, end: 20080629
  11. CALCITRIOL [Concomitant]
  12. NITROGLYCERIN [Concomitant]
  13. CARAFATE [Concomitant]
  14. PROTONIX [Concomitant]
     Dates: start: 20080629
  15. LISINOPRIL [Concomitant]
     Dates: start: 20080629, end: 20080702
  16. IBUPROFEN [Concomitant]
  17. ZOCOR [Concomitant]
  18. METFORMIN HCL [Concomitant]
  19. COZAAR [Concomitant]
  20. NOVOLOG [Concomitant]
  21. INSULIN [Concomitant]
  22. BETHANECHOL [Concomitant]
  23. MOBIC [Concomitant]
  24. TYLENOL-500 [Concomitant]

REACTIONS (1)
  - RENAL FAILURE ACUTE [None]
